FAERS Safety Report 5767552-0 (Version None)
Quarter: 2008Q2

REPORT INFORMATION
  Report Type: 
  Country: None (occurrence: None)
  Receive Date: 20080612
  Receipt Date: 20080603
  Transmission Date: 20081010
  Serious: Yes (Other)
  Sender: FDA-Public Use
  Company Number: PT-BAXTER-2008BH005732

PATIENT
  Sex: Female

DRUGS (1)
  1. DIANEAL [Suspect]
     Indication: PERITONEAL DIALYSIS
     Dosage: DOSE UNIT:UNKNOWN
     Route: 033

REACTIONS (5)
  - HYPERHIDROSIS [None]
  - HYPOTENSION [None]
  - MUSCULOSKELETAL PAIN [None]
  - PAIN [None]
  - SYNCOPE VASOVAGAL [None]
